FAERS Safety Report 6484468-5 (Version None)
Quarter: 2009Q4

REPORT INFORMATION
  Report Type: 
  Country: None (occurrence: None)
  Receive Date: 20091209
  Receipt Date: 20091130
  Transmission Date: 20100525
  Serious: Yes (Other)
  Sender: FDA-Public Use
  Company Number: PHEH2009US14037

PATIENT
  Sex: Female

DRUGS (9)
  1. RECLAST [Suspect]
     Dosage: UNK
     Dates: start: 20080301
  2. RECLAST [Suspect]
     Dosage: UNK
     Dates: start: 20090301
  3. RANITIDINE [Concomitant]
  4. ATENOLOL [Concomitant]
  5. SINGULAIR [Concomitant]
  6. SIMVASTATIN [Concomitant]
  7. ZOLPIDEM [Concomitant]
  8. VITAMIN E [Concomitant]
     Dosage: 400 UNITS, QD
  9. CALTRATE [Suspect]

REACTIONS (4)
  - DENTAL CARIES [None]
  - ORAL INFECTION [None]
  - TOOTH DISORDER [None]
  - TOOTH INJURY [None]
